FAERS Safety Report 14994806 (Version 1)
Quarter: 2018Q2

REPORT INFORMATION
  Report Type: Spontaneous
  Country: US (occurrence: US)
  Receive Date: 20180611
  Receipt Date: 20180611
  Transmission Date: 20180711
  Serious: No
  Sender: FDA-Public Use
  Company Number: US-PFIZER INC-2018235672

PATIENT

DRUGS (2)
  1. LYRICA CR [Suspect]
     Active Substance: PREGABALIN
     Dosage: UNK, TWICE A DAY
  2. LYRICA CR [Suspect]
     Active Substance: PREGABALIN
     Indication: NEUROPATHY PERIPHERAL
     Dosage: UNK, ONCE A DAY

REACTIONS (2)
  - Drug ineffective [Unknown]
  - Product use issue [Unknown]
